FAERS Safety Report 7429721-3 (Version None)
Quarter: 2011Q2

REPORT INFORMATION
  Report Type: 
  Country: None (occurrence: None)
  Receive Date: 20110421
  Receipt Date: 20110414
  Transmission Date: 20111010
  Serious: Yes (Death, Hospitalization, Other)
  Sender: FDA-Public Use
  Company Number: IT-BRISTOL-MYERS SQUIBB COMPANY-15661283

PATIENT
  Age: 6 Decade
  Sex: Female

DRUGS (1)
  1. ABATACEPT [Suspect]
     Indication: RHEUMATOID ARTHRITIS
     Dates: start: 20100101

REACTIONS (6)
  - MULTI-ORGAN FAILURE [None]
  - CARDIAC FAILURE [None]
  - BURSITIS INFECTIVE [None]
  - CEREBRAL ISCHAEMIA [None]
  - THERAPEUTIC RESPONSE DECREASED [None]
  - SURGERY [None]
